FAERS Safety Report 6296047-3 (Version None)
Quarter: 2009Q3

REPORT INFORMATION
  Report Type: 
  Country: None (occurrence: None)
  Receive Date: 20090804
  Receipt Date: 20090730
  Transmission Date: 20100115
  Serious: Yes (Life-Threatening, Hospitalization)
  Sender: FDA-Public Use
  Company Number: US-BRISTOL-MYERS SQUIBB COMPANY-14475024

PATIENT
  Age: 76 Year
  Sex: Female

DRUGS (5)
  1. WARFARIN SODIUM [Suspect]
     Indication: THROMBOSIS PROPHYLAXIS
     Dosage: 1DF=1,2.5 OR 5MG,DUR-49W,1D,22JAN-31DEC08,02JAN-20JAN09,25JAN-11FEB09,14FEB-20JUN09,28JUN09-CONT
     Route: 048
     Dates: start: 20080122
  2. WARFARIN SODIUM [Suspect]
     Indication: ATRIAL FIBRILLATION
     Dosage: 1DF=1,2.5 OR 5MG,DUR-49W,1D,22JAN-31DEC08,02JAN-20JAN09,25JAN-11FEB09,14FEB-20JUN09,28JUN09-CONT
     Route: 048
     Dates: start: 20080122
  3. GLUCOVANCE [Suspect]
     Indication: DIABETES MELLITUS
     Route: 048
     Dates: start: 20080201, end: 20081230
  4. BLINDED: RIVAROXABAN [Suspect]
     Indication: THROMBOSIS PROPHYLAXIS
     Dosage: 22JAN-31DEC08(49W,1D) 02JAN-20JAN09(2W,4D) 25JAN-11FEB09(2W,3D) 14FEB-20JUN09 28JUN09-CONT
     Route: 048
     Dates: start: 20080122
  5. BLINDED: RIVAROXABAN [Suspect]
     Indication: ATRIAL FIBRILLATION
     Dosage: 22JAN-31DEC08(49W,1D) 02JAN-20JAN09(2W,4D) 25JAN-11FEB09(2W,3D) 14FEB-20JUN09 28JUN09-CONT
     Route: 048
     Dates: start: 20080122

REACTIONS (2)
  - HYPOGLYCAEMIA [None]
  - MENTAL STATUS CHANGES [None]
